FAERS Safety Report 20661993 (Version 1)
Quarter: 2022Q2

REPORT INFORMATION
  Report Type: Spontaneous
  Country: FR (occurrence: FR)
  Receive Date: 20220401
  Receipt Date: 20220401
  Transmission Date: 20220720
  Serious: Yes (Other)
  Sender: FDA-Public Use
  Company Number: FR-AFSSAPS-NC20221079

PATIENT
  Age: 13 Year
  Sex: Male

DRUGS (2)
  1. RISPERIDONE [Suspect]
     Active Substance: RISPERIDONE
     Indication: Attention deficit hyperactivity disorder
     Dosage: 2 MILLIGRAM, DAILY
     Route: 048
     Dates: end: 20220221
  2. RISPERIDONE [Suspect]
     Active Substance: RISPERIDONE
     Dosage: 1 MILLIGRAM, DAILY
     Route: 048
     Dates: start: 20220222

REACTIONS (2)
  - Blood creatine phosphokinase increased [Recovering/Resolving]
  - Myalgia [Recovering/Resolving]
